FAERS Safety Report 10674539 (Version 6)
Quarter: 2015Q4

REPORT INFORMATION
  Report Type: Report from Study
  Country: US (occurrence: US)
  Receive Date: 20141222
  Receipt Date: 20151002
  Transmission Date: 20160304
  Serious: Yes (Death, Life-Threatening, Hospitalization)
  Sender: FDA-Public Use
  Company Number: 2014MPI01635

PATIENT

DRUGS (24)
  1. DOXORUBICIN [Suspect]
     Active Substance: DOXORUBICIN
     Indication: HODGKIN^S DISEASE
  2. ANUSOL                             /00117301/ [Concomitant]
     Active Substance: BALSAM PERU\BISMUTH HYDROXIDE\BISMUTH SUBGALLATE\BORIC ACID\ZINC OXIDE
  3. ALPRAZOLAM. [Concomitant]
     Active Substance: ALPRAZOLAM
     Dosage: 0.25 MG, TID
     Route: 048
  4. ANUSOL [Concomitant]
     Dosage: UNK, BID
     Route: 054
  5. HALDOL [Concomitant]
     Active Substance: HALOPERIDOL
  6. DACARBAZINE. [Suspect]
     Active Substance: DACARBAZINE
     Indication: HODGKIN^S DISEASE
     Dosage: 375 MG/M2, Q14D
     Route: 042
     Dates: start: 20140826, end: 20141125
  7. HALDOL [Concomitant]
     Active Substance: HALOPERIDOL
     Dosage: 5 MG, QD
  8. ADVIL [Concomitant]
     Active Substance: IBUPROFEN
     Dosage: 200 MG, PRN
     Route: 048
  9. PROTONIX [Concomitant]
     Active Substance: PANTOPRAZOLE SODIUM
     Dosage: 40 MG, QD
     Route: 048
  10. TRIMETHOBENZAMIDE [Concomitant]
     Active Substance: TRIMETHOBENZAMIDE
     Dosage: 300 MG, TID
  11. CLOBETASOL                         /00337102/ [Concomitant]
     Active Substance: CLOBETASOL
  12. ADVIL [Concomitant]
     Active Substance: IBUPROFEN
  13. DOXORUBICIN [Suspect]
     Active Substance: DOXORUBICIN
     Indication: HODGKIN^S DISEASE
     Dosage: 25 MG/M2, Q14D
     Route: 042
     Dates: start: 20140826, end: 20141125
  14. ACETAMINOPHEN. [Concomitant]
     Active Substance: ACETAMINOPHEN
     Dosage: UNK, PRN
     Route: 048
  15. BRENTUXIMAB VEDOTIN [Suspect]
     Active Substance: BRENTUXIMAB VEDOTIN
     Indication: HODGKIN^S DISEASE
     Dosage: 1.2 MG/KG, Q14D
     Route: 042
     Dates: start: 20140826, end: 20141125
  16. PROCHLORPERAZINE. [Concomitant]
     Active Substance: PROCHLORPERAZINE
     Dosage: 10 MG, QID
     Route: 048
  17. TRIMETHOBENZAMIDE                  /00077702/ [Concomitant]
  18. PROCHLORPERAZINE                   /00013304/ [Concomitant]
  19. DEXAMETHASONE. [Suspect]
     Active Substance: DEXAMETHASONE
     Indication: HODGKIN^S DISEASE
  20. VINBLASTINE [Suspect]
     Active Substance: VINBLASTINE
     Indication: HODGKIN^S DISEASE
     Dosage: 6 MG/M2, Q14D
     Route: 042
     Dates: start: 20140826, end: 20141125
  21. DEXAMETHASONE. [Suspect]
     Active Substance: DEXAMETHASONE
     Indication: CHEMOTHERAPY
     Dosage: 8 MG, BID
     Route: 048
     Dates: start: 20140827, end: 20141128
  22. CLOBETASOL [Concomitant]
     Active Substance: CLOBETASOL
     Dosage: UNK, QD
     Route: 061
  23. BENADRYL [Concomitant]
     Active Substance: DIPHENHYDRAMINE HYDROCHLORIDE
     Dosage: UNK, PRN
     Route: 048
  24. BENADRYL [Concomitant]
     Active Substance: DIPHENHYDRAMINE HYDROCHLORIDE

REACTIONS (19)
  - Aspartate aminotransferase increased [None]
  - Blood creatinine increased [None]
  - Sepsis [None]
  - Haemoglobin decreased [None]
  - Septic shock [Fatal]
  - Respiratory arrest [None]
  - Nausea [None]
  - Clostridial infection [None]
  - Alanine aminotransferase increased [None]
  - Haematocrit decreased [None]
  - Neutropenia [Not Recovered/Not Resolved]
  - Cardiac arrest [None]
  - Abdominal pain [None]
  - Catheter site infection [None]
  - Sinus tachycardia [None]
  - Blood bilirubin increased [None]
  - Troponin I increased [None]
  - Vomiting [None]
  - Skin infection [None]

NARRATIVE: CASE EVENT DATE: 20141204
